FAERS Safety Report 17045753 (Version 2)
Quarter: 2019Q4

REPORT INFORMATION
  Report Type: Report from Study
  Country: None (occurrence: BR)
  Receive Date: 20191118
  Receipt Date: 20191224
  Transmission Date: 20200122
  Serious: Yes (Death, Hospitalization, Other)
  Sender: FDA-Public Use
  Company Number: BR-ABBVIE-19K-020-3001620-00

PATIENT
  Age: 34 Year
  Sex: Male
  Weight: 90 kg

DRUGS (1)
  1. HUMIRA [Suspect]
     Active Substance: ADALIMUMAB
     Indication: ANKYLOSING SPONDYLITIS
     Route: 058
     Dates: start: 20170608

REACTIONS (11)
  - Death [Fatal]
  - Thrombocytopenia [Unknown]
  - Organ failure [Not Recovered/Not Resolved]
  - Immunodeficiency [Unknown]
  - Pyrexia [Recovering/Resolving]
  - Respiratory failure [Not Recovered/Not Resolved]
  - Haemorrhage [Recovering/Resolving]
  - Leishmaniasis [Unknown]
  - Anaemia [Unknown]
  - Malaise [Unknown]
  - Cough [Recovering/Resolving]

NARRATIVE: CASE EVENT DATE: 20191106
